FAERS Safety Report 10600669 (Version 4)
Quarter: 2015Q1

REPORT INFORMATION
  Report Type: Report from Study
  Country: US (occurrence: US)
  Receive Date: 20141124
  Receipt Date: 20150126
  Transmission Date: 20150720
  Serious: Yes (Hospitalization)
  Sender: FDA-Public Use
  Company Number: US-BIOGENIDEC-2014BI122137

PATIENT
  Age: 57 Year
  Sex: Female

DRUGS (12)
  1. ACETAMINOPHEN. [Concomitant]
     Active Substance: ACETAMINOPHEN
     Route: 048
  2. LEVOTHYROXINE [Concomitant]
     Active Substance: LEVOTHYROXINE
     Route: 048
  3. SERTRALINE [Concomitant]
     Active Substance: SERTRALINE HYDROCHLORIDE
     Route: 048
  4. AVONEX [Suspect]
     Active Substance: INTERFERON BETA-1A
     Indication: MULTIPLE SCLEROSIS
     Route: 030
     Dates: start: 20140802
  5. BACLOFEN. [Concomitant]
     Active Substance: BACLOFEN
     Route: 048
     Dates: start: 20140228
  6. AVONEX [Suspect]
     Active Substance: INTERFERON BETA-1A
     Indication: MULTIPLE SCLEROSIS
     Route: 030
     Dates: start: 20090703, end: 20120208
  7. POTASSIUM CITRATE. [Concomitant]
     Active Substance: POTASSIUM CITRATE
     Route: 048
     Dates: start: 20140918
  8. PROAIR HFA [Concomitant]
     Active Substance: ALBUTEROL SULFATE
     Dates: start: 20140911
  9. LISINOPRIL. [Concomitant]
     Active Substance: LISINOPRIL
     Route: 048
  10. AVONEX [Suspect]
     Active Substance: INTERFERON BETA-1A
     Indication: MULTIPLE SCLEROSIS
     Route: 030
  11. WARFARIN [Concomitant]
     Active Substance: WARFARIN
     Route: 048
  12. OXCARBAZEPINE. [Concomitant]
     Active Substance: OXCARBAZEPINE
     Route: 048

REACTIONS (5)
  - Hand fracture [Recovered/Resolved]
  - Road traffic accident [Recovered/Resolved]
  - Jaw fracture [Recovered/Resolved]
  - Open fracture [Recovered/Resolved]
  - Wrist fracture [Unknown]

NARRATIVE: CASE EVENT DATE: 20141029
